FAERS Safety Report 17562101 (Version 2)
Quarter: 2020Q2

REPORT INFORMATION
  Report Type: Spontaneous
  Country: US (occurrence: US)
  Receive Date: 20200319
  Receipt Date: 20200401
  Transmission Date: 20200713
  Serious: Yes (Hospitalization, Other)
  Sender: FDA-Public Use
  Company Number: US-ASTRAZENECA-2020SE39383

PATIENT
  Age: 789 Month
  Sex: Female
  Weight: 91.6 kg

DRUGS (11)
  1. LYRICA [Concomitant]
     Active Substance: PREGABALIN
  2. ATORVASTATIN [Concomitant]
     Active Substance: ATORVASTATIN
     Dosage: 80 MG/DL DAILY
  3. NYSTATIN. [Concomitant]
     Active Substance: NYSTATIN
     Indication: RASH
  4. METOPROLOL SUCCINATE. [Concomitant]
     Active Substance: METOPROLOL SUCCINATE
     Indication: BLOOD PRESSURE ABNORMAL
  5. BYDUREON BCISE [Suspect]
     Active Substance: EXENATIDE
     Indication: TYPE 2 DIABETES MELLITUS
     Route: 058
  6. BUSPAR [Concomitant]
     Active Substance: BUSPIRONE HYDROCHLORIDE
  7. EZETIMIBE. [Concomitant]
     Active Substance: EZETIMIBE
  8. PERCOCET [Concomitant]
     Active Substance: ACETAMINOPHEN\OXYCODONE HYDROCHLORIDE
  9. JARDIANCE [Concomitant]
     Active Substance: EMPAGLIFLOZIN
  10. TELMISARTAN. [Concomitant]
     Active Substance: TELMISARTAN
  11. CILOSTAZOL. [Concomitant]
     Active Substance: CILOSTAZOL

REACTIONS (5)
  - Vein disorder [Unknown]
  - Myocardial infarction [Unknown]
  - Stent malfunction [Unknown]
  - Incorrect dose administered by device [Unknown]
  - Device issue [Unknown]

NARRATIVE: CASE EVENT DATE: 201901
